FAERS Safety Report 6696569-7 (Version None)
Quarter: 2010Q2

REPORT INFORMATION
  Report Type: 
  Country: None (occurrence: None)
  Receive Date: 20100422
  Receipt Date: 20100412
  Transmission Date: 20101027
  Serious: Yes (Life-Threatening)
  Sender: FDA-Public Use
  Company Number: 2010AL002247

PATIENT
  Age: 4 Year
  Sex: Male

DRUGS (2)
  1. FEVERALL [Suspect]
     Dosage: ; IV
     Route: 042
     Dates: start: 20100331, end: 20100331
  2. SEVOFLURANE [Concomitant]

REACTIONS (2)
  - BRADYCARDIA [None]
  - NODAL ARRHYTHMIA [None]
